FAERS Safety Report 9390794 (Version 4)
Quarter: 2013Q3

REPORT INFORMATION
  Report Type: Spontaneous
  Country: US (occurrence: US)
  Receive Date: 20130709
  Receipt Date: 20130802
  Transmission Date: 20140515
  Serious: No
  Sender: FDA-Public Use
  Company Number: US-009507513-1307USA002738

PATIENT
  Age: 29 Year
  Sex: Female
  Weight: 70.3 kg

DRUGS (2)
  1. IMPLANON [Suspect]
     Indication: CONTRACEPTION
     Dosage: 1 ROD EVERY 3 YEARS
     Route: 059
     Dates: start: 20110323
  2. SESAME [Suspect]

REACTIONS (2)
  - Unintended pregnancy [Unknown]
  - Medical device complication [Not Recovered/Not Resolved]
